FAERS Safety Report 10078683 (Version 1)
Quarter: 2014Q2

REPORT INFORMATION
  Report Type: Spontaneous
  Country: US (occurrence: US)
  Receive Date: 20140415
  Receipt Date: 20140415
  Transmission Date: 20141212
  Serious: No
  Sender: FDA-Public Use
  Company Number: US-MYLANLABS-2013S1019093

PATIENT
  Sex: Female

DRUGS (1)
  1. VERAPAMIL HCL EXTENDED RELEASE TABLETS, USP [Suspect]

REACTIONS (2)
  - Haemoglobin decreased [Not Recovered/Not Resolved]
  - Red blood cell count decreased [Not Recovered/Not Resolved]
